FAERS Safety Report 6345353-2 (Version None)
Quarter: 2009Q3

REPORT INFORMATION
  Report Type: 
  Country: None (occurrence: None)
  Receive Date: 20090909
  Receipt Date: 20090828
  Transmission Date: 20100115
  Serious: Yes (Death, Hospitalization)
  Sender: FDA-Public Use
  Company Number: DE-WYE-H10805609

PATIENT
  Age: 89 Year
  Sex: Female

DRUGS (8)
  1. PANTOPRAZOLE SODIUM [Suspect]
     Indication: PROPHYLAXIS AGAINST GASTROINTESTINAL ULCER
     Route: 048
     Dates: start: 20080101
  2. CEFOTIAM HYDROCHLORIDE [Interacting]
     Indication: PNEUMONIA
     Route: 042
     Dates: start: 20090425, end: 20090429
  3. TORASEMIDE [Concomitant]
     Indication: RENAL FAILURE CHRONIC
     Route: 048
     Dates: start: 20090409, end: 20090501
  4. FENTANYL [Concomitant]
     Indication: BREAST CANCER METASTATIC
     Route: 062
     Dates: start: 20080101
  5. METAMIZOLE [Concomitant]
     Indication: PAIN
     Route: 048
     Dates: start: 20080101
  6. METRONIDAZOLE [Concomitant]
     Indication: PNEUMONIA
     Route: 042
     Dates: start: 20090425, end: 20090429
  7. MOXIFLOXACIN HCL [Interacting]
     Indication: PNEUMONIA
     Route: 048
     Dates: start: 20090430, end: 20090501
  8. LEKOVIT CA [Concomitant]
     Indication: BREAST CANCER METASTATIC
     Dosage: UNKNOWN

REACTIONS (2)
  - DRUG INTERACTION [None]
  - PSEUDOMEMBRANOUS COLITIS [None]
